FAERS Safety Report 18289954 (Version 1)
Quarter: 2020Q3

REPORT INFORMATION
  Report Type: Spontaneous
  Country: RU (occurrence: RU)
  Receive Date: 20200921
  Receipt Date: 20200921
  Transmission Date: 20201103
  Serious: Yes (Death, Other)
  Sender: FDA-Public Use
  Company Number: RU-VALIDUS PHARMACEUTICALS LLC-RU-2020VAL000769

PATIENT

DRUGS (32)
  1. MEROPENEM. [Suspect]
     Active Substance: MEROPENEM
     Indication: PNEUMONIA
     Dosage: UNK
     Route: 065
  2. ACETYLCYSTEINE. [Suspect]
     Active Substance: ACETYLCYSTEINE
     Indication: RESPIRATORY FAILURE
  3. LASOLVAN [Suspect]
     Active Substance: AMBROXOL HYDROCHLORIDE
     Indication: PNEUMONIA
     Dosage: UNK
     Route: 065
  4. FUROSEMIDE. [Suspect]
     Active Substance: FUROSEMIDE
     Indication: RESPIRATORY FAILURE
  5. FUROSEMIDE. [Suspect]
     Active Substance: FUROSEMIDE
     Indication: COVID-19
  6. LINEZOLID. [Suspect]
     Active Substance: LINEZOLID
     Indication: COMPUTERISED TOMOGRAM
  7. ACETYLCYSTEINE. [Suspect]
     Active Substance: ACETYLCYSTEINE
     Indication: PNEUMONIA
     Dosage: UNK
     Route: 065
  8. DEXAMETHASONE. [Suspect]
     Active Substance: DEXAMETHASONE
     Indication: RESPIRATORY FAILURE
  9. LASOLVAN [Suspect]
     Active Substance: AMBROXOL HYDROCHLORIDE
     Indication: COVID-19
  10. LASOLVAN [Suspect]
     Active Substance: AMBROXOL HYDROCHLORIDE
     Indication: COMPUTERISED TOMOGRAM
  11. CLEXANE [Suspect]
     Active Substance: ENOXAPARIN SODIUM
     Indication: PNEUMONIA
     Dosage: UNK
     Route: 065
  12. LOPINAVIR/RITONAVIR [Suspect]
     Active Substance: LOPINAVIR\RITONAVIR
     Indication: RESPIRATORY FAILURE
  13. LINEZOLID. [Suspect]
     Active Substance: LINEZOLID
     Indication: PNEUMONIA
     Dosage: UNK
     Route: 065
  14. LINEZOLID. [Suspect]
     Active Substance: LINEZOLID
     Indication: RESPIRATORY FAILURE
  15. DEXAMETHASONE. [Suspect]
     Active Substance: DEXAMETHASONE
     Indication: COVID-19
  16. CLEXANE [Suspect]
     Active Substance: ENOXAPARIN SODIUM
     Indication: RESPIRATORY FAILURE
  17. DEXAMETHASONE. [Suspect]
     Active Substance: DEXAMETHASONE
     Indication: PNEUMONIA
     Dosage: UNK
     Route: 065
  18. DEXAMETHASONE. [Suspect]
     Active Substance: DEXAMETHASONE
     Indication: COMPUTERISED TOMOGRAM
  19. CLEXANE [Suspect]
     Active Substance: ENOXAPARIN SODIUM
     Indication: COVID-19
  20. MEROPENEM. [Suspect]
     Active Substance: MEROPENEM
     Indication: COVID-19
  21. MEROPENEM. [Suspect]
     Active Substance: MEROPENEM
     Indication: RESPIRATORY FAILURE
  22. ACETYLCYSTEINE. [Suspect]
     Active Substance: ACETYLCYSTEINE
     Indication: COVID-19
  23. LASOLVAN [Suspect]
     Active Substance: AMBROXOL HYDROCHLORIDE
     Indication: RESPIRATORY FAILURE
  24. FUROSEMIDE. [Suspect]
     Active Substance: FUROSEMIDE
     Indication: PNEUMONIA
     Dosage: UNK
     Route: 065
  25. CLEXANE [Suspect]
     Active Substance: ENOXAPARIN SODIUM
     Indication: COMPUTERISED TOMOGRAM
  26. LOPINAVIR/RITONAVIR [Suspect]
     Active Substance: LOPINAVIR\RITONAVIR
     Indication: PNEUMONIA
     Dosage: UNK
     Route: 065
  27. LOPINAVIR/RITONAVIR [Suspect]
     Active Substance: LOPINAVIR\RITONAVIR
     Indication: COVID-19
  28. ACETYLCYSTEINE. [Suspect]
     Active Substance: ACETYLCYSTEINE
     Indication: COMPUTERISED TOMOGRAM
  29. FUROSEMIDE. [Suspect]
     Active Substance: FUROSEMIDE
     Indication: COMPUTERISED TOMOGRAM
  30. MEROPENEM. [Suspect]
     Active Substance: MEROPENEM
     Indication: COMPUTERISED TOMOGRAM
  31. LOPINAVIR/RITONAVIR [Suspect]
     Active Substance: LOPINAVIR\RITONAVIR
     Indication: COMPUTERISED TOMOGRAM
  32. LINEZOLID. [Suspect]
     Active Substance: LINEZOLID
     Indication: PNEUMONIA

REACTIONS (4)
  - Off label use [Unknown]
  - Acute respiratory failure [Unknown]
  - Pulmonary oedema [Unknown]
  - Death [Fatal]

NARRATIVE: CASE EVENT DATE: 20200701
